FAERS Safety Report 10734122 (Version 4)
Quarter: 2018Q4

REPORT INFORMATION
  Report Type: Spontaneous
  Country: JP (occurrence: JP)
  Receive Date: 20150123
  Receipt Date: 20181016
  Transmission Date: 20190204
  Serious: Yes (Hospitalization, Other)
  Sender: FDA-Public Use
  Company Number: JP-GLAXOSMITHKLINE-JP2015JPN005350

PATIENT
  Age: 30 Year
  Sex: Female

DRUGS (3)
  1. VEGETAMIN-A [Concomitant]
     Active Substance: CHLORPROMAZINE HYDROCHLORIDE\PHENOBARBITAL\PROMETHAZINE
     Dosage: UNK
  2. LAMICTAL [Suspect]
     Active Substance: LAMOTRIGINE
     Indication: DEPRESSION
  3. LAMICTAL [Suspect]
     Active Substance: LAMOTRIGINE
     Indication: BIPOLAR DISORDER
     Dosage: 100 MG, 1D
     Route: 048
     Dates: start: 20141220

REACTIONS (6)
  - Suicide attempt [Unknown]
  - Toxic epidermal necrolysis [Unknown]
  - Loss of consciousness [Unknown]
  - Rash [Unknown]
  - Overdose [Unknown]
  - Hyperthermia [Unknown]

NARRATIVE: CASE EVENT DATE: 2015
